FAERS Safety Report 25377741 (Version 1)
Quarter: 2025Q2

REPORT INFORMATION
  Report Type: Other
  Country: HU (occurrence: HU)
  Receive Date: 20250530
  Receipt Date: 20250530
  Transmission Date: 20250716
  Serious: Yes (Death, Life-Threatening, Hospitalization, Other)
  Sender: STRIDES
  Company Number: HU-MYLANLABS-2020M1023938

PATIENT
  Age: 37 Year
  Sex: Female

DRUGS (11)
  1. LEVETIRACETAM [Suspect]
     Active Substance: LEVETIRACETAM
     Indication: Product used for unknown indication
     Route: 065
  2. VANCOMYCIN [Suspect]
     Active Substance: VANCOMYCIN
     Indication: Product used for unknown indication
     Route: 065
  3. LAMOTRIGINE [Interacting]
     Active Substance: LAMOTRIGINE
     Indication: Epilepsy
     Route: 065
  4. LAMOTRIGINE [Interacting]
     Active Substance: LAMOTRIGINE
     Route: 065
  5. LAMOTRIGINE [Suspect]
     Active Substance: LAMOTRIGINE
     Indication: Epilepsy
     Route: 048
     Dates: start: 201802
  6. VALPROIC ACID [Interacting]
     Active Substance: VALPROIC ACID
     Indication: Epilepsy
     Route: 065
  7. LAMICTAL [Suspect]
     Active Substance: LAMOTRIGINE
     Indication: Epilepsy
     Route: 065
  8. CARBAMAZEPINE [Interacting]
     Active Substance: CARBAMAZEPINE
     Indication: Epilepsy
     Route: 065
  9. VALPROIC ACID [Interacting]
     Active Substance: VALPROIC ACID
     Indication: Epilepsy
     Route: 065
  10. VALPROIC ACID [Interacting]
     Active Substance: VALPROIC ACID
     Route: 065
  11. VALPROATE [Interacting]
     Active Substance: VALPROIC ACID
     Indication: Epilepsy
     Route: 065

REACTIONS (11)
  - Sepsis [Fatal]
  - Influenza like illness [Fatal]
  - Multiple organ dysfunction syndrome [Fatal]
  - Drug interaction [Fatal]
  - Toxic epidermal necrolysis [Fatal]
  - Atrial fibrillation [Unknown]
  - Acute respiratory distress syndrome [Unknown]
  - Skin necrosis [Unknown]
  - Respiratory failure [Unknown]
  - Renal impairment [Unknown]
  - Pancytopenia [Unknown]

NARRATIVE: CASE EVENT DATE: 20180101
